FAERS Safety Report 23528718 (Version 2)
Quarter: 2024Q3

REPORT INFORMATION
  Report Type: Spontaneous
  Country: US (occurrence: US)
  Receive Date: 20240215
  Receipt Date: 20240827
  Transmission Date: 20241016
  Serious: Yes (Hospitalization, Other)
  Sender: ABBVIE
  Company Number: US-ABBVIE-5637320

PATIENT
  Age: 74 Year
  Sex: Male

DRUGS (2)
  1. SKYRIZI [Suspect]
     Active Substance: RISANKIZUMAB-RZAA
     Indication: Crohn^s disease
     Dosage: FORM STRENGTH: 360 MG
     Route: 058
  2. SKYRIZI [Suspect]
     Active Substance: RISANKIZUMAB-RZAA
     Indication: Crohn^s disease
     Dosage: FORM STRENGTH: 600 MILLIGRAM
     Route: 042

REACTIONS (6)
  - Cerebrovascular accident [Unknown]
  - Injection site erythema [Unknown]
  - Device issue [Recovered/Resolved]
  - Gastroenteritis viral [Unknown]
  - Urinary tract infection [Unknown]
  - Dehydration [Unknown]

NARRATIVE: CASE EVENT DATE: 20240116
